FAERS Safety Report 8429373-X (Version None)
Quarter: 2012Q2

REPORT INFORMATION
  Report Type: 
  Country: None (occurrence: None)
  Receive Date: 20120612
  Receipt Date: 20120604
  Transmission Date: 20120825
  Serious: Yes (Other)
  Sender: FDA-Public Use
  Company Number: US-PFIZER INC-2007101706

PATIENT
  Age: 85 Year
  Sex: Female

DRUGS (3)
  1. LANSOPRAZOLE [Concomitant]
  2. GABAPENTIN [Suspect]
     Indication: NEURALGIA
  3. HALOPERIDOL [Concomitant]

REACTIONS (4)
  - PSYCHOMOTOR HYPERACTIVITY [None]
  - RHABDOMYOLYSIS [None]
  - ABDOMINAL PAIN UPPER [None]
  - RENAL FAILURE ACUTE [None]
